FAERS Safety Report 8971330 (Version 1)
Quarter: 2012Q4

REPORT INFORMATION
  Report Type: 
  Country: CA (occurrence: CA)
  Receive Date: 20121218
  Receipt Date: 20121218
  Transmission Date: 20130627
  Serious: Yes (Death)
  Sender: FDA-Public Use
  Company Number: CA-AMGEN-CANSP2012078349

PATIENT
  Age: 70 Year
  Sex: Male
  Weight: 95 kg

DRUGS (16)
  1. ENBREL [Suspect]
     Indication: PRODUCT USED FOR UNKNOWN INDICATION
     Dosage: 50 mg, qwk
     Route: 058
  2. ASA [Concomitant]
     Dosage: UNK
  3. ATENOLOL [Concomitant]
     Dosage: UNK
  4. CIPROFLOXACIN [Concomitant]
     Dosage: UNK
  5. FERROUS GLUCONATE [Concomitant]
     Dosage: UNK
  6. FOLIC ACID [Concomitant]
     Dosage: UNK
  7. FUROSEMIDE [Concomitant]
     Dosage: UNK
  8. GABAPENTIN [Concomitant]
     Dosage: UNK
  9. ISOSORBIDE MONONITRATE [Concomitant]
     Dosage: UNK
  10. LOSEC                              /00661201/ [Concomitant]
     Dosage: UNK
  11. METHOTREXATE [Concomitant]
     Dosage: UNK
  12. PAROXETINE [Concomitant]
     Dosage: UNK
  13. PRAVASTATIN SODIUM [Concomitant]
     Dosage: UNK
  14. RAMIPRIL [Concomitant]
     Dosage: UNK
  15. SULFASALAZIN [Concomitant]
     Dosage: UNK
  16. WARFARIN [Concomitant]
     Dosage: UNK

REACTIONS (1)
  - Cerebrovascular accident [Fatal]
